APPROVED DRUG PRODUCT: CLOZARIL
Active Ingredient: CLOZAPINE
Strength: 50MG **Federal Register determination that product was not discontinued or withdrawn for safety or effectiveness reasons**
Dosage Form/Route: TABLET;ORAL
Application: N019758 | Product #003
Applicant: HERITAGE LIFE SCIENCES BARBADOS INC
Approved: May 20, 2019 | RLD: Yes | RS: No | Type: DISCN